FAERS Safety Report 9363162 (Version 1)
Quarter: 2013Q2

REPORT INFORMATION
  Report Type: Spontaneous
  Country: US (occurrence: US)
  Receive Date: 20130624
  Receipt Date: 20130624
  Transmission Date: 20140414
  Serious: Yes (Hospitalization)
  Sender: FDA-Public Use
  Company Number: US-BIOGENIDEC-2013BI054899

PATIENT
  Age: 56 Year
  Sex: Female

DRUGS (2)
  1. TECFIDERA [Suspect]
     Indication: MULTIPLE SCLEROSIS
     Route: 048
     Dates: start: 20130510
  2. TECFIDERA [Suspect]
     Indication: MULTIPLE SCLEROSIS
     Route: 048
     Dates: start: 20130517, end: 20130604

REACTIONS (8)
  - Gastrointestinal pain [Not Recovered/Not Resolved]
  - Abdominal pain [Unknown]
  - Vomiting projectile [Unknown]
  - Diarrhoea [Unknown]
  - Tachycardia [Unknown]
  - Blood pressure fluctuation [Unknown]
  - Nausea [Unknown]
  - Muscle spasms [Unknown]
